FAERS Safety Report 8297414-9 (Version None)
Quarter: 2012Q2

REPORT INFORMATION
  Report Type: 
  Country: None (occurrence: None)
  Receive Date: 20120419
  Receipt Date: 20120413
  Transmission Date: 20120825
  Serious: Yes (Life-Threatening, Hospitalization)
  Sender: FDA-Public Use
  Company Number: AU-PFIZER INC-2012096206

PATIENT
  Age: 61 Year
  Sex: Female
  Weight: 50 kg

DRUGS (6)
  1. NEXIUM [Concomitant]
     Dosage: UNK
  2. PREDNISOLONE [Concomitant]
     Dosage: UNK
  3. SILDENAFIL [Concomitant]
     Dosage: UNK
     Dates: start: 20090101
  4. MS CONTIN [Suspect]
     Dosage: 30 MG, 2X/DAY
     Dates: start: 20111004, end: 20120101
  5. OXYCODONE HCL [Suspect]
     Indication: PULMONARY FIBROSIS
     Dosage: 40/20 MG TAB DAILY (SINGLE DOSE ONLY)
     Route: 048
     Dates: start: 20120131, end: 20120131
  6. LORATADINE [Concomitant]
     Dosage: UNK

REACTIONS (13)
  - DELIRIUM [None]
  - DRUG WITHDRAWAL SYNDROME [None]
  - NAUSEA [None]
  - YAWNING [None]
  - MALAISE [None]
  - ANXIETY [None]
  - VOMITING [None]
  - FEELING COLD [None]
  - PAIN [None]
  - DIARRHOEA [None]
  - CHILLS [None]
  - HYPERBILIRUBINAEMIA [None]
  - DYSPHORIA [None]
